FAERS Safety Report 5781221-2 (Version None)
Quarter: 2008Q2

REPORT INFORMATION
  Report Type: 
  Country: None (occurrence: None)
  Receive Date: 20080618
  Receipt Date: 20080606
  Transmission Date: 20081010
  Serious: Yes (Other)
  Sender: FDA-Public Use
  Company Number: 2008AL006583

PATIENT
  Sex: Female

DRUGS (1)
  1. DIGOXIN [Suspect]
     Indication: CARDIAC FAILURE CONGESTIVE
     Dosage: 0.25MG DAILY PO
     Route: 048
     Dates: start: 20071001, end: 20080401

REACTIONS (4)
  - CARDIAC FAILURE [None]
  - DIZZINESS [None]
  - FATIGUE [None]
  - MALAISE [None]
